FAERS Safety Report 11340992 (Version 1)
Quarter: 2015Q3

REPORT INFORMATION
  Report Type: Spontaneous
  Country: US (occurrence: None)
  Receive Date: 20150803
  Receipt Date: 20150803
  Transmission Date: 20151125
  Serious: No
  Sender: FDA-Public Use
  Company Number: None

PATIENT
  Age: 87 Year
  Sex: Female

DRUGS (6)
  1. MAGNESIUM [Concomitant]
     Active Substance: MAGNESIUM
  2. CITALOPRAM [Concomitant]
     Active Substance: CITALOPRAM HYDROBROMIDE
  3. ERYTHROMYCIN BASE 500 MG TABLETS QUANTITY 30 [Suspect]
     Active Substance: ERYTHROMYCIN
     Indication: TOOTH INFECTION
     Dosage: 2 NOW THEN ONE EVERY 6 HOURS
     Route: 048
     Dates: start: 20150708, end: 20150719
  4. THYROXIN [Concomitant]
     Active Substance: LEVOTHYROXINE
  5. VITAMIN D [Concomitant]
     Active Substance: CHOLECALCIFEROL
  6. CALCIUM [Concomitant]
     Active Substance: CALCIUM

REACTIONS (5)
  - Nausea [None]
  - Insomnia [None]
  - Chest discomfort [None]
  - Dyspnoea [None]
  - Vomiting [None]

NARRATIVE: CASE EVENT DATE: 20150710
